FAERS Safety Report 24990113 (Version 2)
Quarter: 2025Q1

REPORT INFORMATION
  Report Type: Spontaneous
  Country: FR (occurrence: FR)
  Receive Date: 20250220
  Receipt Date: 20250306
  Transmission Date: 20250409
  Serious: Yes (Hospitalization, Other)
  Sender: RANBAXY
  Company Number: FR-AFSSAPS-TO2024002334

PATIENT
  Age: 77 Year
  Sex: Female

DRUGS (2)
  1. MORPHINE [Suspect]
     Active Substance: MORPHINE
     Indication: Abdominal pain
     Dosage: 1 DOSAGE FORM, DAILY
     Route: 040
  2. MORPHINE [Suspect]
     Active Substance: MORPHINE
     Route: 040
     Dates: start: 20240516, end: 20240612

REACTIONS (3)
  - Delusional disorder, unspecified type [Not Recovered/Not Resolved]
  - Delirium [Recovered/Resolved]
  - Hallucination [Recovered/Resolved]

NARRATIVE: CASE EVENT DATE: 20240516
